FAERS Safety Report 9529818 (Version 1)
Quarter: 2013Q1

REPORT INFORMATION
  Report Type: Spontaneous
  Country: US (occurrence: None)
  Receive Date: 20130318
  Receipt Date: 20130318
  Transmission Date: 20140127
  Serious: Yes (Hospitalization)
  Sender: FDA-Public Use
  Company Number: 2012SP021258

PATIENT
  Sex: Male

DRUGS (3)
  1. VICTRELIS [Suspect]
     Indication: HEPATITIS C
     Route: 048
     Dates: start: 2012, end: 20120418
  2. REBETOL [Suspect]
     Indication: HEPATITIS C
  3. PEGINTRON [Suspect]
     Indication: HEPATITIS C

REACTIONS (3)
  - Rash generalised [None]
  - White blood cell count abnormal [None]
  - Platelet count abnormal [None]
